FAERS Safety Report 19913696 (Version 2)
Quarter: 2021Q4

REPORT INFORMATION
  Report Type: Spontaneous
  Country: SE (occurrence: SE)
  Receive Date: 20211004
  Receipt Date: 20211014
  Transmission Date: 20220303
  Serious: Yes (Other)
  Sender: FDA-Public Use
  Company Number: SE-BTGSP-SE-BTGSP-21-0119

PATIENT
  Age: 7 Year
  Sex: Male
  Weight: 32.5 kg

DRUGS (82)
  1. VORAXAZE [Suspect]
     Active Substance: GLUCARPIDASE
     Indication: Toxicity to various agents
     Dosage: 1000 UNITS
     Route: 065
     Dates: start: 20180110, end: 20180110
  2. VORAXAZE [Suspect]
     Active Substance: GLUCARPIDASE
     Dosage: 1000 UNITS
     Route: 065
     Dates: start: 20180114, end: 20180114
  3. METHOTREXATE [Suspect]
     Active Substance: METHOTREXATE
     Indication: Acute lymphocytic leukaemia
     Dosage: 12 MILLIGRAM
     Route: 037
     Dates: start: 20180109
  4. METHOTREXATE [Suspect]
     Active Substance: METHOTREXATE
     Dosage: 550 MILLIGRAM
     Route: 042
     Dates: start: 20180109
  5. METHOTREXATE [Suspect]
     Active Substance: METHOTREXATE
     Dosage: 4950 MILLIGRAM
     Route: 042
     Dates: start: 20180109
  6. LEUCOVORIN [Suspect]
     Active Substance: LEUCOVORIN
     Indication: Toxicity to various agents
     Dosage: 2400 MG
     Route: 065
     Dates: start: 20180111
  7. LEUCOVORIN [Suspect]
     Active Substance: LEUCOVORIN
     Dosage: 2450 MG
     Route: 065
     Dates: start: 20180111
  8. LEUCOVORIN [Suspect]
     Active Substance: LEUCOVORIN
     Dosage: 750 MG
     Route: 065
     Dates: start: 20180112
  9. LEUCOVORIN [Suspect]
     Active Substance: LEUCOVORIN
     Dosage: 900 MG
     Route: 065
     Dates: start: 20180113
  10. LEUCOVORIN [Suspect]
     Active Substance: LEUCOVORIN
     Dosage: 450 MG
     Route: 065
     Dates: start: 20180113
  11. LEUCOVORIN [Suspect]
     Active Substance: LEUCOVORIN
     Dosage: 400 MG
     Route: 065
     Dates: start: 20180113
  12. LEUCOVORIN [Suspect]
     Active Substance: LEUCOVORIN
     Dosage: 300 MG
     Route: 065
     Dates: start: 20180113
  13. LEUCOVORIN [Suspect]
     Active Substance: LEUCOVORIN
     Dosage: 250 MG
     Route: 065
     Dates: start: 20180114
  14. LEUCOVORIN [Suspect]
     Active Substance: LEUCOVORIN
     Dosage: 200 MG
     Route: 065
     Dates: start: 20180114
  15. LEUCOVORIN [Suspect]
     Active Substance: LEUCOVORIN
     Dosage: 150 MG
     Route: 065
     Dates: start: 20180114
  16. LEUCOVORIN CALCIUM [Suspect]
     Active Substance: LEUCOVORIN CALCIUM
     Indication: Toxicity to various agents
     Dosage: 6000 MG, 90%
     Route: 042
     Dates: start: 20180111
  17. LEUCOVORIN CALCIUM [Suspect]
     Active Substance: LEUCOVORIN CALCIUM
     Dosage: 2900 MG, 95%
     Route: 042
     Dates: start: 20180112
  18. LEUCOVORIN CALCIUM [Suspect]
     Active Substance: LEUCOVORIN CALCIUM
     Dosage: 1050 MG, 45%
     Route: 042
     Dates: start: 20180112
  19. CLINDAMYCIN [Suspect]
     Active Substance: CLINDAMYCIN
     Indication: Product used for unknown indication
     Dosage: UNK; 2.5D3
     Route: 065
     Dates: start: 20180108, end: 20180108
  20. CLINDAMYCIN [Suspect]
     Active Substance: CLINDAMYCIN
     Indication: Product used for unknown indication
     Dosage: UNK; 10X3
     Route: 048
     Dates: start: 20180109, end: 20180109
  21. ANHYDROUS DEXTROSE [Concomitant]
     Active Substance: ANHYDROUS DEXTROSE
     Indication: Product used for unknown indication
     Dosage: 3 ? 4,5 L/M2
     Route: 042
     Dates: start: 20180109, end: 20180121
  22. ANHYDROUS DEXTROSE [Concomitant]
     Active Substance: ANHYDROUS DEXTROSE
     Dosage: UNK
     Route: 042
     Dates: start: 20180109
  23. ANHYDROUS DEXTROSE [Concomitant]
     Active Substance: ANHYDROUS DEXTROSE
     Dosage: UNK
     Route: 042
     Dates: start: 20180110
  24. ANHYDROUS DEXTROSE [Concomitant]
     Active Substance: ANHYDROUS DEXTROSE
     Dosage: UNK
     Route: 042
     Dates: start: 20180110
  25. ANHYDROUS DEXTROSE [Concomitant]
     Active Substance: ANHYDROUS DEXTROSE
     Dosage: UNK
     Route: 042
     Dates: start: 20180111
  26. ANHYDROUS DEXTROSE [Concomitant]
     Active Substance: ANHYDROUS DEXTROSE
     Dosage: UNK
     Route: 042
     Dates: start: 20180111
  27. ANHYDROUS DEXTROSE [Concomitant]
     Active Substance: ANHYDROUS DEXTROSE
     Dosage: UNK
     Route: 042
     Dates: start: 20180112
  28. ANHYDROUS DEXTROSE [Concomitant]
     Active Substance: ANHYDROUS DEXTROSE
     Dosage: UNK
     Route: 042
     Dates: start: 20180112
  29. ANHYDROUS DEXTROSE [Concomitant]
     Active Substance: ANHYDROUS DEXTROSE
     Dosage: UNK
     Route: 042
     Dates: start: 20180112
  30. ANHYDROUS DEXTROSE [Concomitant]
     Active Substance: ANHYDROUS DEXTROSE
     Dosage: UNK
     Route: 042
     Dates: start: 20180113
  31. ANHYDROUS DEXTROSE [Concomitant]
     Active Substance: ANHYDROUS DEXTROSE
     Dosage: UNK
     Route: 042
     Dates: start: 20180113
  32. ANHYDROUS DEXTROSE [Concomitant]
     Active Substance: ANHYDROUS DEXTROSE
     Dosage: UNK
     Route: 042
     Dates: start: 20180113
  33. ANHYDROUS DEXTROSE [Concomitant]
     Active Substance: ANHYDROUS DEXTROSE
     Dosage: UNK
     Route: 042
     Dates: start: 20180113
  34. ANHYDROUS DEXTROSE [Concomitant]
     Active Substance: ANHYDROUS DEXTROSE
     Dosage: UNK
     Route: 042
     Dates: start: 20180114
  35. ANHYDROUS DEXTROSE [Concomitant]
     Active Substance: ANHYDROUS DEXTROSE
     Dosage: UNK
     Route: 042
     Dates: start: 20180114
  36. ANHYDROUS DEXTROSE [Concomitant]
     Active Substance: ANHYDROUS DEXTROSE
     Dosage: UNK
     Route: 042
     Dates: start: 20180114
  37. SODIUM BICARBONATE [Concomitant]
     Active Substance: SODIUM BICARBONATE
     Indication: Product used for unknown indication
     Dosage: 42 MMOL/L CONCENTRATION
     Route: 042
     Dates: start: 20180109, end: 20180121
  38. SODIUM BICARBONATE [Concomitant]
     Active Substance: SODIUM BICARBONATE
     Dosage: 42 MMOL/L CONCENTRATION
     Route: 042
     Dates: start: 20180109
  39. SODIUM BICARBONATE [Concomitant]
     Active Substance: SODIUM BICARBONATE
     Dosage: 42 MMOL/L CONCENTRATION
     Route: 042
     Dates: start: 20180110
  40. SODIUM BICARBONATE [Concomitant]
     Active Substance: SODIUM BICARBONATE
     Dosage: 63 MMOL/L CONCENTRATION
     Route: 042
     Dates: start: 20180110
  41. SODIUM BICARBONATE [Concomitant]
     Active Substance: SODIUM BICARBONATE
     Dosage: 63 MMOL/L CONCENTRATION
     Route: 042
     Dates: start: 20180111
  42. SODIUM BICARBONATE [Concomitant]
     Active Substance: SODIUM BICARBONATE
     Dosage: 63 MMOL/L CONCENTRATION
     Route: 042
     Dates: start: 20180111
  43. SODIUM BICARBONATE [Concomitant]
     Active Substance: SODIUM BICARBONATE
     Dosage: 63 MMOL/L CONCENTRATION
     Route: 042
     Dates: start: 20180112
  44. SODIUM BICARBONATE [Concomitant]
     Active Substance: SODIUM BICARBONATE
     Dosage: 63 MMOL/L CONCENTRATION
     Route: 042
     Dates: start: 20180112
  45. SODIUM BICARBONATE [Concomitant]
     Active Substance: SODIUM BICARBONATE
     Dosage: 63 MMOL/L CONCENTRATION
     Route: 042
     Dates: start: 20180112
  46. SODIUM BICARBONATE [Concomitant]
     Active Substance: SODIUM BICARBONATE
     Dosage: 63 MMOL/L CONCENTRATION
     Route: 042
     Dates: start: 20180113
  47. SODIUM BICARBONATE [Concomitant]
     Active Substance: SODIUM BICARBONATE
     Dosage: 63 MMOL/L CONCENTRATION
     Route: 042
     Dates: start: 20180113
  48. SODIUM BICARBONATE [Concomitant]
     Active Substance: SODIUM BICARBONATE
     Dosage: 63 MMOL/L CONCENTRATION
     Route: 042
     Dates: start: 20180113
  49. SODIUM BICARBONATE [Concomitant]
     Active Substance: SODIUM BICARBONATE
     Dosage: 63 MMOL/L CONCENTRATION
     Route: 042
     Dates: start: 20180113
  50. SODIUM BICARBONATE [Concomitant]
     Active Substance: SODIUM BICARBONATE
     Dosage: 63 MMOL/L CONCENTRATION
     Route: 042
     Dates: start: 20180114
  51. SODIUM BICARBONATE [Concomitant]
     Active Substance: SODIUM BICARBONATE
     Dosage: 63 MMOL/L CONCENTRATION
     Route: 042
     Dates: start: 20180114
  52. SODIUM BICARBONATE [Concomitant]
     Active Substance: SODIUM BICARBONATE
     Dosage: 63 MMOL/L CONCENTRATION
     Route: 042
     Dates: start: 20180114
  53. POTASSIUM CHLORIDE [Concomitant]
     Active Substance: POTASSIUM CHLORIDE
     Indication: Product used for unknown indication
     Dosage: 3 ? 4,5 L/M2
     Route: 042
     Dates: start: 20180109, end: 20180121
  54. POTASSIUM CHLORIDE [Concomitant]
     Active Substance: POTASSIUM CHLORIDE
     Dosage: UNK
     Route: 042
     Dates: start: 20180109
  55. POTASSIUM CHLORIDE [Concomitant]
     Active Substance: POTASSIUM CHLORIDE
     Dosage: UNK
     Route: 042
     Dates: start: 20180110
  56. POTASSIUM CHLORIDE [Concomitant]
     Active Substance: POTASSIUM CHLORIDE
     Dosage: UNK
     Route: 042
     Dates: start: 20180110
  57. POTASSIUM CHLORIDE [Concomitant]
     Active Substance: POTASSIUM CHLORIDE
     Dosage: UNK
     Route: 042
     Dates: start: 20180111
  58. POTASSIUM CHLORIDE [Concomitant]
     Active Substance: POTASSIUM CHLORIDE
     Dosage: UNK
     Route: 042
     Dates: start: 20180111
  59. POTASSIUM CHLORIDE [Concomitant]
     Active Substance: POTASSIUM CHLORIDE
     Dosage: UNK
     Route: 042
     Dates: start: 20180112
  60. POTASSIUM CHLORIDE [Concomitant]
     Active Substance: POTASSIUM CHLORIDE
     Dosage: UNK
     Route: 042
     Dates: start: 20180112
  61. POTASSIUM CHLORIDE [Concomitant]
     Active Substance: POTASSIUM CHLORIDE
     Dosage: UNK
     Route: 042
     Dates: start: 20180112
  62. POTASSIUM CHLORIDE [Concomitant]
     Active Substance: POTASSIUM CHLORIDE
     Dosage: UNK
     Route: 042
     Dates: start: 20180113
  63. POTASSIUM CHLORIDE [Concomitant]
     Active Substance: POTASSIUM CHLORIDE
     Dosage: UNK
     Route: 042
     Dates: start: 20180113
  64. POTASSIUM CHLORIDE [Concomitant]
     Active Substance: POTASSIUM CHLORIDE
     Dosage: UNK
     Route: 042
     Dates: start: 20180113
  65. POTASSIUM CHLORIDE [Concomitant]
     Active Substance: POTASSIUM CHLORIDE
     Dosage: UNK
     Route: 042
     Dates: start: 20180113
  66. POTASSIUM CHLORIDE [Concomitant]
     Active Substance: POTASSIUM CHLORIDE
     Dosage: UNK
     Route: 042
     Dates: start: 20180114
  67. POTASSIUM CHLORIDE [Concomitant]
     Active Substance: POTASSIUM CHLORIDE
     Dosage: UNK
     Route: 042
     Dates: start: 20180114
  68. POTASSIUM CHLORIDE [Concomitant]
     Active Substance: POTASSIUM CHLORIDE
     Dosage: UNK
     Route: 042
     Dates: start: 20180114
  69. MERCAPTOPURINE [Concomitant]
     Active Substance: MERCAPTOPURINE
     Indication: Product used for unknown indication
     Dosage: UNK; 1.5
     Route: 048
     Dates: start: 20180108, end: 20180110
  70. ADDEX-NATRIUMKLORID [Concomitant]
     Indication: Product used for unknown indication
     Dosage: UNK; 24.5
     Route: 065
     Dates: start: 20180114, end: 20180114
  71. ADDEX-KALIUM [Concomitant]
     Indication: Product used for unknown indication
     Dosage: UNK; 12.3
     Route: 065
     Dates: start: 20180114, end: 20180114
  72. MOVICOL JUNIOR NEUTRAL [Concomitant]
     Indication: Constipation prophylaxis
     Dosage: UNK; 1X2
     Route: 048
     Dates: start: 20180108
  73. CEFUROXIME [Concomitant]
     Active Substance: CEFUROXIME
     Indication: Fluid retention
     Dosage: UNK; 1.7 VB
     Route: 065
     Dates: start: 20180109, end: 20180122
  74. CEFUROXIME [Concomitant]
     Active Substance: CEFUROXIME
     Dosage: UNK; 1.5 VB
     Dates: start: 20180114, end: 20180114
  75. HUMAN RED BLOOD CELL [Concomitant]
     Active Substance: HUMAN RED BLOOD CELL
     Indication: Product used for unknown indication
     Dosage: UNK, SINGLE
     Route: 065
     Dates: start: 20180108, end: 20180119
  76. NATRIUMBIKARBONAT FRESENIUS KABI [Concomitant]
     Indication: Product used for unknown indication
     Dosage: UNK; 20 VB
     Route: 065
     Dates: start: 20180109
  77. BUCLIZINE HYDROCHLORIDE [Concomitant]
     Active Substance: BUCLIZINE HYDROCHLORIDE
     Indication: Vomiting
     Dosage: UNK; 0.5 GO
     Route: 065
     Dates: start: 20180110, end: 20180110
  78. PALONOSETRON. [Concomitant]
     Active Substance: PALONOSETRON HYDROCHLORIDE
     Indication: Product used for unknown indication
     Dosage: UNK; 5
     Route: 065
     Dates: start: 20180109, end: 20180109
  79. PALONOSETRON. [Concomitant]
     Active Substance: PALONOSETRON HYDROCHLORIDE
     Dosage: UNK; 5
     Dates: start: 20180111, end: 20180111
  80. PALONOSETRON. [Concomitant]
     Active Substance: PALONOSETRON HYDROCHLORIDE
     Dosage: UNK; 5
     Dates: start: 20180114, end: 20180114
  81. LEUCOVORIN [Concomitant]
     Active Substance: LEUCOVORIN
     Indication: Toxicity to various agents
     Dosage: UNK, Q6H
     Route: 065
  82. LEVOLEUCOVORIN CALCIUM [Concomitant]
     Active Substance: LEVOLEUCOVORIN CALCIUM
     Indication: Toxicity to various agents
     Route: 065

REACTIONS (5)
  - Respiratory arrest [Recovered/Resolved]
  - Seizure [Recovered/Resolved]
  - Loss of consciousness [Recovered/Resolved]
  - Blood electrolytes abnormal [Recovered/Resolved]
  - Off label use [Unknown]

NARRATIVE: CASE EVENT DATE: 20180112
